FAERS Safety Report 11425941 (Version 1)
Quarter: 2015Q3

REPORT INFORMATION
  Report Type: Spontaneous
  Country: US (occurrence: US)
  Receive Date: 20150821
  Receipt Date: 20150821
  Transmission Date: 20151125
  Serious: No
  Sender: FDA-Public Use
  Company Number: US-ELI_LILLY_AND_COMPANY-US201012004693

PATIENT
  Sex: Female

DRUGS (5)
  1. HUMULIN 70/30 [Suspect]
     Active Substance: INSULIN HUMAN
     Dosage: 45 U, EACH EVENING
     Dates: start: 2006
  2. METFORMIN [Concomitant]
     Active Substance: METFORMIN HYDROCHLORIDE
     Dosage: 500 MG, 2/D
  3. METANX [Concomitant]
     Active Substance: LEVOMEFOLATE CALCIUM\METHYLCOBALAMIN\PYRIDOXAL PHOSPHATE ANHYDROUS
  4. HUMULIN 70/30 [Suspect]
     Active Substance: INSULIN HUMAN
     Indication: TYPE 2 DIABETES MELLITUS
     Dosage: 55 U, EACH MORNING
  5. LYRICA [Concomitant]
     Active Substance: PREGABALIN

REACTIONS (16)
  - Dysgeusia [Unknown]
  - Fatigue [Unknown]
  - Blood glucose increased [Unknown]
  - Vomiting [Unknown]
  - Diarrhoea [Unknown]
  - Drug ineffective [Unknown]
  - Wound haemorrhage [Unknown]
  - Erythema [Unknown]
  - Wound complication [Unknown]
  - Decreased appetite [Unknown]
  - Blister [Unknown]
  - Impaired healing [Unknown]
  - Arthralgia [Unknown]
  - Dry mouth [Unknown]
  - Malaise [Unknown]
  - Nail injury [Unknown]

NARRATIVE: CASE EVENT DATE: 20101203
